FAERS Safety Report 8503498-2 (Version None)
Quarter: 2012Q3

REPORT INFORMATION
  Report Type: 
  Country: None (occurrence: None)
  Receive Date: 20120711
  Receipt Date: 20120703
  Transmission Date: 20120928
  Serious: Yes (Hospitalization)
  Sender: FDA-Public Use
  Company Number: SG-VIIV HEALTHCARE LIMITED-B0813155A

PATIENT
  Age: 50 Year
  Sex: Male

DRUGS (1)
  1. LAMIVUDINE (EPIVIR HBV) [Suspect]
     Indication: PRODUCT USED FOR UNKNOWN INDICATION
     Dosage: 150MG TWICE PER DAY
     Route: 048
     Dates: start: 20120210, end: 20120224

REACTIONS (3)
  - RASH [None]
  - THROMBOCYTOPENIA [None]
  - RENAL IMPAIRMENT [None]
